FAERS Safety Report 8032435-2 (Version None)
Quarter: 2012Q1

REPORT INFORMATION
  Report Type: 
  Country: None (occurrence: None)
  Receive Date: 20120110
  Receipt Date: 20120105
  Transmission Date: 20120608
  Serious: Yes (Hospitalization)
  Sender: FDA-Public Use
  Company Number: NL-JNJFOC-20111203679

PATIENT
  Age: 50 Year
  Sex: Female

DRUGS (15)
  1. NEULASTA [Suspect]
     Indication: CHEMOTHERAPY
     Route: 065
  2. DOCETAXEL [Suspect]
     Indication: BREAST CANCER
     Route: 065
     Dates: start: 20110718
  3. DOXORUBICIN HCL [Suspect]
     Route: 042
     Dates: end: 20110808
  4. CYCLOPHOSPHAMIDE [Suspect]
     Route: 042
     Dates: end: 20110808
  5. TEMAZEPAM [Concomitant]
     Route: 065
     Dates: start: 20110830, end: 20110831
  6. DOCETAXEL [Suspect]
     Route: 065
     Dates: end: 20110808
  7. CYCLOPHOSPHAMIDE [Suspect]
     Indication: BREAST CANCER
     Route: 042
     Dates: start: 20110718
  8. ONDANSETRON [Suspect]
     Indication: PRODUCT USED FOR UNKNOWN INDICATION
     Route: 065
  9. MAGNESIUM OXIDE [Concomitant]
     Route: 065
     Dates: start: 20110829
  10. DOXORUBICIN HCL [Suspect]
     Indication: BREAST CANCER
     Route: 042
     Dates: start: 20110718
  11. MOVICOLON [Concomitant]
     Route: 065
     Dates: start: 20110830
  12. GRANISETRON [Suspect]
     Indication: PRODUCT USED FOR UNKNOWN INDICATION
     Route: 065
  13. DEXAMETHASONE [Suspect]
     Indication: PRODUCT USED FOR UNKNOWN INDICATION
     Route: 065
  14. ACETAMINOPHEN [Concomitant]
     Route: 065
     Dates: start: 20110829
  15. LEVOTHYROXINE SODIUM [Concomitant]
     Route: 065
     Dates: start: 20110829

REACTIONS (1)
  - ANAL ABSCESS [None]
